FAERS Safety Report 5851945-7 (Version None)
Quarter: 2008Q3

REPORT INFORMATION
  Report Type: 
  Country: None (occurrence: None)
  Receive Date: 20080820
  Receipt Date: 20080808
  Transmission Date: 20090109
  Serious: Yes (Other)
  Sender: FDA-Public Use
  Company Number: US-PFIZER INC-2008052146

PATIENT
  Sex: Female
  Weight: 112 kg

DRUGS (10)
  1. CHANTIX [Suspect]
     Indication: SMOKING CESSATION THERAPY
     Route: 048
  2. EFFEXOR XR [Concomitant]
  3. ABILIFY [Concomitant]
  4. OMEPRAZOLE [Concomitant]
  5. CELEBREX [Concomitant]
  6. LISINOPRIL [Concomitant]
  7. SYNTHROID [Concomitant]
  8. FUROSEMIDE [Concomitant]
     Route: 048
  9. DETROL LA [Concomitant]
     Route: 048
  10. ACETYLSALICYLIC ACID SRT [Concomitant]

REACTIONS (1)
  - DEPRESSION [None]
